FAERS Safety Report 14405755 (Version 1)
Quarter: 2018Q1

REPORT INFORMATION
  Report Type: Spontaneous
  Country: US (occurrence: US)
  Receive Date: 20180118
  Receipt Date: 20180118
  Transmission Date: 20180509
  Serious: Yes (Other)
  Sender: FDA-Public Use
  Company Number: US-UNITED THERAPEUTICS-UNT-2017-018026

PATIENT
  Age: 72 Year
  Sex: Female
  Weight: 74.83 kg

DRUGS (4)
  1. REMODULIN [Suspect]
     Active Substance: TREPROSTINIL
     Indication: PULMONARY ARTERIAL HYPERTENSION
     Dosage: 0.028 ?G/KG, CONTINUING
     Route: 058
  2. REMODULIN [Suspect]
     Active Substance: TREPROSTINIL
     Indication: PULMONARY HYPERTENSION
     Dosage: 0.035 ?G/KG, CONTINUING
     Route: 058
     Dates: start: 20150903
  3. ADEMPAS [Suspect]
     Active Substance: RIOCIGUAT
     Indication: PRODUCT USED FOR UNKNOWN INDICATION
     Dosage: 1.5 MG, UNK
     Route: 065
  4. ADEMPAS [Suspect]
     Active Substance: RIOCIGUAT
     Dosage: 1 MG, TID
     Route: 065

REACTIONS (16)
  - Pulmonary oedema [Unknown]
  - Quality of life decreased [Unknown]
  - Drug dose omission [Unknown]
  - Nausea [Unknown]
  - Infusion site erythema [Unknown]
  - Influenza [Unknown]
  - Fall [Recovered/Resolved]
  - Pain [Unknown]
  - Infusion site swelling [Unknown]
  - Syncope [Unknown]
  - Sinus disorder [Unknown]
  - Tinnitus [Unknown]
  - Infusion site infection [Unknown]
  - Dizziness [Not Recovered/Not Resolved]
  - Infusion site pain [Unknown]
  - Contusion [Unknown]

NARRATIVE: CASE EVENT DATE: 201712
